FAERS Safety Report 9835259 (Version 1)
Quarter: 2014Q1

REPORT INFORMATION
  Report Type: Spontaneous
  Country: US (occurrence: US)
  Receive Date: 20140122
  Receipt Date: 20140122
  Transmission Date: 20141002
  Serious: No
  Sender: FDA-Public Use
  Company Number: US-BRISTOL-MYERS SQUIBB COMPANY-19900448

PATIENT
  Age: 60 Year
  Sex: Female
  Weight: 176.87 kg

DRUGS (5)
  1. ELIQUIS [Suspect]
     Dates: start: 20131207
  2. LEVOTHYROXINE [Concomitant]
  3. SIMVASTATIN [Concomitant]
  4. SERTRALINE [Concomitant]
  5. METOPROLOL [Concomitant]

REACTIONS (5)
  - Diarrhoea [Unknown]
  - Nausea [Unknown]
  - Headache [Unknown]
  - Abdominal pain [Unknown]
  - Vaginal haemorrhage [Unknown]
